FAERS Safety Report 19986511 (Version 3)
Quarter: 2022Q2

REPORT INFORMATION
  Report Type: Spontaneous
  Country: US (occurrence: US)
  Receive Date: 20211022
  Receipt Date: 20220614
  Transmission Date: 20220720
  Serious: Yes (Other)
  Sender: FDA-Public Use
  Company Number: US-PFIZER INC-202101360782

PATIENT
  Age: 58 Year
  Sex: Female

DRUGS (1)
  1. XELJANZ [Suspect]
     Active Substance: TOFACITINIB CITRATE
     Indication: Rheumatoid arthritis
     Dosage: 5 MG, 2X/DAY
     Route: 048
     Dates: start: 2016

REACTIONS (11)
  - Pulmonary embolism [Unknown]
  - Breast cancer [Unknown]
  - Foot fracture [Unknown]
  - Pulmonary thrombosis [Unknown]
  - Coagulopathy [Unknown]
  - Hysterectomy [Unknown]
  - Fall [Unknown]
  - Upper limb fracture [Unknown]
  - Product dose omission issue [Unknown]
  - Malaise [Unknown]
  - Condition aggravated [Unknown]

NARRATIVE: CASE EVENT DATE: 20180101
